FAERS Safety Report 7289943-1 (Version None)
Quarter: 2011Q1

REPORT INFORMATION
  Report Type: 
  Country: None (occurrence: None)
  Receive Date: 20110210
  Receipt Date: 20110210
  Transmission Date: 20110831
  Serious: No
  Sender: FDA-Public Use
  Company Number: None

PATIENT
  Age: 2 Month
  Sex: Male
  Weight: 4 kg

DRUGS (2)
  1. ADVATE [Suspect]
     Indication: FACTOR VIII DEFICIENCY
     Dosage: 245 INTERNATIONAL UNITS PRN IV BOLUS
     Route: 040
     Dates: start: 20101214, end: 20101214
  2. ADVATE [Suspect]
     Indication: HEAD INJURY
     Dosage: 245 INTERNATIONAL UNITS PRN IV BOLUS
     Route: 040
     Dates: start: 20101214, end: 20101214

REACTIONS (1)
  - FACTOR VIII DEFICIENCY [None]
